FAERS Safety Report 12414554 (Version 2)
Quarter: 2016Q3

REPORT INFORMATION
  Report Type: Report from Study
  Country: US (occurrence: US)
  Receive Date: 20160528
  Receipt Date: 20160722
  Transmission Date: 20161109
  Serious: Yes (Hospitalization, Other)
  Sender: FDA-Public Use
  Company Number: US-AMGEN-USASP2015139529

PATIENT
  Age: 88 Year
  Sex: Female
  Weight: 68.27 kg

DRUGS (2)
  1. PROLIA [Suspect]
     Active Substance: DENOSUMAB
     Indication: OSTEOPOROSIS POSTMENOPAUSAL
     Dosage: 60 MG, Q6MO
     Route: 058
     Dates: start: 20140523
  2. VITAMIN D3 [Concomitant]
     Active Substance: CHOLECALCIFEROL
     Indication: VITAMIN D DEFICIENCY
     Dosage: 50000 UNIT, 3 TIMES/WK

REACTIONS (10)
  - Blood sodium decreased [Recovering/Resolving]
  - Fatigue [Recovering/Resolving]
  - Blood albumin decreased [Unknown]
  - Carbon dioxide decreased [Recovering/Resolving]
  - Hyponatraemia [Unknown]
  - Paranasal sinus discomfort [Unknown]
  - Lung hyperinflation [Unknown]
  - Hypocalcaemia [Recovered/Resolved]
  - Urinary tract disorder [Unknown]
  - Urinary tract infection [Recovering/Resolving]

NARRATIVE: CASE EVENT DATE: 20151222
